FAERS Safety Report 20533979 (Version 1)
Quarter: 2022Q1

REPORT INFORMATION
  Report Type: Report from Study
  Country: CA (occurrence: CA)
  Receive Date: 20220301
  Receipt Date: 20220301
  Transmission Date: 20220423
  Serious: Yes (Other)
  Sender: FDA-Public Use
  Company Number: CA-JNJFOC-20220227251

PATIENT
  Age: 48 Year
  Sex: Female
  Weight: 112.5 kg

DRUGS (1)
  1. REMICADE [Suspect]
     Active Substance: INFLIXIMAB
     Indication: Crohn^s disease
     Route: 042

REACTIONS (7)
  - Deafness unilateral [Unknown]
  - Crohn^s disease [Unknown]
  - Hypertension [Recovering/Resolving]
  - COVID-19 [Not Recovered/Not Resolved]
  - Ear pain [Unknown]
  - Cerumen impaction [Unknown]
  - Ear infection [Unknown]

NARRATIVE: CASE EVENT DATE: 20220126
